FAERS Safety Report 13875556 (Version 1)
Quarter: 2017Q3

REPORT INFORMATION
  Report Type: Spontaneous
  Country: US (occurrence: US)
  Receive Date: 20170817
  Receipt Date: 20170817
  Transmission Date: 20171127
  Serious: Yes (Other)
  Sender: FDA-Public Use
  Company Number: US-ROCHE-1975949

PATIENT
  Age: 50 Year
  Sex: Female

DRUGS (3)
  1. KLONOPIN [Suspect]
     Active Substance: CLONAZEPAM
     Indication: PRODUCT USED FOR UNKNOWN INDICATION
     Route: 065
  2. SERTRALINE [Suspect]
     Active Substance: SERTRALINE HYDROCHLORIDE
     Indication: DEPRESSION
     Dosage: 25MG HALF TABLET
     Route: 048
  3. ZOLOFT [Concomitant]
     Active Substance: SERTRALINE HYDROCHLORIDE
     Indication: DEPRESSION
     Dosage: 25MG HALF TABLET BY MOUTH
     Route: 048
     Dates: start: 201511, end: 201706

REACTIONS (8)
  - Hallucination [Unknown]
  - Weight decreased [Unknown]
  - Bedridden [Unknown]
  - Nausea [Unknown]
  - Anxiety [Unknown]
  - Brain injury [Recovering/Resolving]
  - Sleep disorder [Unknown]
  - Diarrhoea [Unknown]
